FAERS Safety Report 5060984-8 (Version None)
Quarter: 2006Q3

REPORT INFORMATION
  Report Type: 
  Country: None (occurrence: None)
  Receive Date: 20060720
  Receipt Date: 20060720
  Transmission Date: 20061208
  Serious: Yes (Other)
  Sender: FDA-Public Use
  Company Number: None

PATIENT
  Sex: Male

DRUGS (5)
  1. DULOXETINE [Suspect]
     Indication: DEPRESSION
     Dosage: 20 MG DAILY PO
     Route: 048
     Dates: start: 20060515, end: 20060523
  2. LISINOPRIL [Concomitant]
  3. LORAZEPAM [Concomitant]
  4. OXYCODONE AND ACETAMINOPHEN [Concomitant]
  5. TERAZOSIN HCL [Concomitant]

REACTIONS (1)
  - TREMOR [None]
